FAERS Safety Report 22845722 (Version 3)
Quarter: 2023Q4

REPORT INFORMATION
  Report Type: Spontaneous
  Country: PR (occurrence: PR)
  Receive Date: 20230821
  Receipt Date: 20231121
  Transmission Date: 20240109
  Serious: No
  Sender: FDA-Public Use
  Company Number: PR-PFIZER INC-2020313635

PATIENT
  Age: 76 Year
  Sex: Female

DRUGS (1)
  1. IBRANCE [Suspect]
     Active Substance: PALBOCICLIB
     Indication: Invasive lobular breast carcinoma
     Dosage: 75 MG, CYCLIC (DOSAGE: 75MG/ TAKE ONE TABLET BY MOUTH EVERY DAY ON DAYS 1-21 EVERY 28 DAYS)
     Route: 048

REACTIONS (1)
  - Neoplasm progression [Unknown]
